FAERS Safety Report 9097524 (Version 1)
Quarter: 2013Q1

REPORT INFORMATION
  Report Type: Spontaneous
  Country: US (occurrence: US)
  Receive Date: 20130212
  Receipt Date: 20130212
  Transmission Date: 20140127
  Serious: No
  Sender: FDA-Public Use
  Company Number: US-PFIZER INC-2013052629

PATIENT
  Age: 64 Year
  Sex: Female
  Weight: 82.99 kg

DRUGS (7)
  1. LEVOXYL [Suspect]
     Indication: HYPOTHYROIDISM
     Dosage: UNK, 1X/DAY
     Route: 048
  2. PROTONIX [Suspect]
     Indication: GASTRIC DISORDER
     Dosage: UNK, 1X/DAY
     Route: 048
     Dates: start: 201202
  3. EFFEXOR XR [Suspect]
     Indication: DEPRESSION
     Dosage: 150 MG, 1X/DAY
     Route: 048
     Dates: start: 201202
  4. BABY ASPIRIN [Concomitant]
     Indication: CARDIAC DISORDER
     Dosage: UNK
  5. IRON SUPPLEMENT [Concomitant]
     Dosage: UNK
  6. VITAMIN C [Concomitant]
     Dosage: UNK
  7. FISH OIL [Concomitant]
     Dosage: UNK

REACTIONS (6)
  - Fall [Unknown]
  - Limb injury [Unknown]
  - Joint injury [Unknown]
  - Pain [Unknown]
  - Synovial cyst [Unknown]
  - Arthritis [Unknown]
